FAERS Safety Report 8806793 (Version 1)
Quarter: 2012Q4

REPORT INFORMATION
  Report Type: 
  Country: US (occurrence: US)
  Receive Date: 20120925
  Receipt Date: 20120925
  Transmission Date: 20130627
  Serious: Yes (Hospitalization, Other)
  Sender: FDA-Public Use
  Company Number: US-COVIDIEN/TYCO HEALTHCARE/MALLINCKRODT-T201203428

PATIENT
  Age: 55 Year
  Sex: Female

DRUGS (6)
  1. FENTANYL TRANSDERMAL SYSTEM [Suspect]
     Indication: BREAKTHROUGH PAIN
     Dosage: 50 ug/hr, UNK
     Route: 062
  2. FENTANYL TRANSDERMAL SYSTEM [Suspect]
     Dosage: 75 ug/hr, UNK
  3. HYDROCODONE/ACETAMINOPHEN [Suspect]
     Indication: BREAKTHROUGH PAIN
     Dosage: UNK
  4. MORPHINE [Suspect]
     Dosage: 40 mg,
     Route: 042
  5. METHADONE [Suspect]
     Indication: PAIN
     Dosage: 10 mg, bid
  6. DULOXETINE [Suspect]
     Indication: BREAKTHROUGH PAIN
     Dosage: 20 mg, qd

REACTIONS (6)
  - Delirium [Recovered/Resolved]
  - Altered state of consciousness [Recovered/Resolved]
  - Hypercalcaemia [Recovering/Resolving]
  - Pain [Recovering/Resolving]
  - Fall [Unknown]
  - Drug ineffective [Recovering/Resolving]
